FAERS Safety Report 4648942-6 (Version None)
Quarter: 2005Q2

REPORT INFORMATION
  Report Type: 
  Country: None (occurrence: None)
  Receive Date: 20050427
  Receipt Date: 20050411
  Transmission Date: 20051028
  Serious: Yes (Hospitalization, Other)
  Sender: FDA-Public Use
  Company Number: US_0504115298

PATIENT
  Age: 57 Year
  Sex: Female

DRUGS (2)
  1. GEMZAR [Suspect]
     Indication: OVARIAN EPITHELIAL CANCER STAGE III
     Dosage: 2000 MG/M2 OTHER
     Dates: start: 20020501
  2. DOXORUBICIN [Concomitant]

REACTIONS (16)
  - BLOOD LACTATE DEHYDROGENASE INCREASED [None]
  - DRUG TOXICITY [None]
  - GRANULOCYTOPENIA [None]
  - HAEMOLYTIC URAEMIC SYNDROME [None]
  - MACROCYTOSIS [None]
  - MUCOSAL INFLAMMATION [None]
  - NON-CARDIOGENIC PULMONARY OEDEMA [None]
  - OEDEMA PERIPHERAL [None]
  - PERICARDIAL EFFUSION [None]
  - PULMONARY FUNCTION TEST DECREASED [None]
  - RED BLOOD CELL SCHISTOCYTES PRESENT [None]
  - RENAL FAILURE [None]
  - RENAL NECROSIS [None]
  - SECONDARY HYPERTENSION [None]
  - THROMBOTIC MICROANGIOPATHY [None]
  - VITAL CAPACITY DECREASED [None]
